FAERS Safety Report 21683138 (Version 3)
Quarter: 2023Q1

REPORT INFORMATION
  Report Type: Report from Study
  Country: US (occurrence: US)
  Receive Date: 20221205
  Receipt Date: 20230113
  Transmission Date: 20230417
  Serious: Yes (Death, Hospitalization)
  Sender: FDA-Public Use
  Company Number: US-PARATEK PHARMACEUTICALS, INC.-2022PTK00405

PATIENT
  Sex: Female
  Weight: 34.014 kg

DRUGS (4)
  1. NUZYRA [Suspect]
     Active Substance: OMADACYCLINE
     Indication: Mycobacterial infection
     Dosage: UNK
     Dates: start: 2022, end: 2022
  2. NUZYRA [Suspect]
     Active Substance: OMADACYCLINE
     Dosage: 300 MG, 1X/DAY
     Route: 048
     Dates: start: 20221027, end: 20221104
  3. AMIKACIN [Concomitant]
     Active Substance: AMIKACIN
  4. CLOFAZIMINE [Concomitant]
     Active Substance: CLOFAZIMINE

REACTIONS (8)
  - Liver disorder [Fatal]
  - Renal disorder [Fatal]
  - Malnutrition [Fatal]
  - Blood bilirubin increased [Unknown]
  - Diarrhoea [Recovered/Resolved]
  - Vomiting [Recovered/Resolved]
  - Abdominal pain upper [Recovered/Resolved]
  - Off label use [Recovered/Resolved]

NARRATIVE: CASE EVENT DATE: 20220101
